FAERS Safety Report 8462015 (Version 3)
Quarter: 2012Q4

REPORT INFORMATION
  Report Type: Report from Study
  Country: BE (occurrence: BE)
  Receive Date: 20120315
  Receipt Date: 20121030
  Transmission Date: 20130627
  Serious: Yes (Hospitalization)
  Sender: FDA-Public Use
  Company Number: BE-ABBOTT-12P-013-0911387-01

PATIENT
  Age: 51 Year
  Sex: Female

DRUGS (19)
  1. HUMIRA [Suspect]
     Indication: CROHN^S DISEASE
     Dosage: Baseline
     Route: 058
     Dates: start: 200602, end: 200602
  2. HUMIRA [Suspect]
     Dosage: Week 2
     Route: 058
  3. HUMIRA [Suspect]
     Route: 058
     Dates: end: 20090121
  4. HUMIRA [Suspect]
     Route: 058
     Dates: start: 20100630, end: 20101208
  5. REMICADE [Concomitant]
     Indication: CROHN^S DISEASE
  6. CORTICOSTEROIDS [Concomitant]
     Indication: CROHN^S DISEASE
  7. IMMUNOSUPPRESSANTS [Concomitant]
     Indication: CROHN^S DISEASE
  8. ENTOCORT [Concomitant]
     Indication: CROHN^S DISEASE
     Dates: start: 200506, end: 201101
  9. OMEPRAZOLE [Concomitant]
     Indication: GASTRITIS
     Dates: start: 200804, end: 201101
  10. DAFALGAN [Concomitant]
     Indication: ARTHRALGIA
     Dates: start: 200807
  11. TEMESTA [Concomitant]
     Indication: INSOMNIA
     Dates: start: 20080930, end: 20120201
  12. SPIRIVA [Concomitant]
     Indication: EMPHYSEMA
     Dates: start: 20081209
  13. METHOTREXATE [Concomitant]
     Indication: CROHN^S DISEASE
     Dates: start: 201201
  14. FOLIC ACID [Concomitant]
     Indication: VITAMIN SUPPLEMENTATION
     Dates: start: 20111207
  15. PANTOMED [Concomitant]
     Indication: PROPHYLAXIS
     Dates: start: 20110107
  16. AMLODIPINE BESILATE [Concomitant]
     Indication: HYPERTENSION
     Dates: start: 201004
  17. BISOPROLOL FUMARATE [Concomitant]
     Indication: HYPERTENSION
     Dates: start: 2010
  18. SERETIDE [Concomitant]
     Indication: CHRONIC OBSTRUCTIVE PULMONARY DISEASE
     Dates: start: 20100908
  19. DUOVENT [Concomitant]
     Indication: CHRONIC OBSTRUCTIVE PULMONARY DISEASE

REACTIONS (8)
  - Weight decreased [Not Recovered/Not Resolved]
  - Chronic obstructive pulmonary disease [Not Recovered/Not Resolved]
  - Crohn^s disease [Not Recovered/Not Resolved]
  - Chronic obstructive pulmonary disease [Not Recovered/Not Resolved]
  - General physical health deterioration [Not Recovered/Not Resolved]
  - General physical health deterioration [Not Recovered/Not Resolved]
  - Chronic obstructive pulmonary disease [Not Recovered/Not Resolved]
  - Intestinal obstruction [Not Recovered/Not Resolved]
